FAERS Safety Report 10070310 (Version 2)
Quarter: 2014Q2

REPORT INFORMATION
  Report Type: Spontaneous
  Country: DE (occurrence: DE)
  Receive Date: 20140410
  Receipt Date: 20140602
  Transmission Date: 20141212
  Serious: Yes (Life-Threatening, Hospitalization, Other)
  Sender: FDA-Public Use
  Company Number: DE-ROCHE-1379286

PATIENT
  Age: 74 Year
  Sex: Female
  Weight: 53 kg

DRUGS (15)
  1. TOCILIZUMAB [Suspect]
     Indication: RHEUMATOID ARTHRITIS
     Route: 065
     Dates: start: 20131025
  2. TOCILIZUMAB [Suspect]
     Route: 065
     Dates: start: 20140116
  3. PREDNISOLON [Concomitant]
     Route: 048
  4. TOREM [Concomitant]
     Route: 048
  5. METOPROLOL SUCCINATE [Concomitant]
     Route: 048
  6. PANTOZOL (GERMANY) [Concomitant]
     Route: 048
  7. VIANI FORTE [Concomitant]
     Dosage: 50UG/500UG DISKUS
     Route: 055
  8. DECOSTRIOL [Concomitant]
     Route: 048
  9. DEKRISTOL [Concomitant]
     Route: 048
  10. VALSARTAN [Concomitant]
     Route: 048
  11. SIMVASTATIN [Concomitant]
     Route: 048
  12. HEPARIN [Concomitant]
     Route: 058
  13. BICANORM [Concomitant]
     Route: 048
  14. AMPHOTERICIN B [Concomitant]
  15. COTRIM [Concomitant]
     Route: 065

REACTIONS (8)
  - Hypertension [Unknown]
  - Rash generalised [Unknown]
  - Renal failure acute [Not Recovered/Not Resolved]
  - Proteinuria [Unknown]
  - Amyloidosis [Unknown]
  - Atypical pneumonia [Recovered/Resolved]
  - Pulmonary haemorrhage [Recovered/Resolved]
  - Pneumonia pneumococcal [Unknown]
